FAERS Safety Report 5925983-X (Version None)
Quarter: 2008Q4

REPORT INFORMATION
  Report Type: 
  Country: None (occurrence: None)
  Receive Date: 20081021
  Receipt Date: 20081013
  Transmission Date: 20090506
  Serious: Yes (Life-Threatening)
  Sender: FDA-Public Use
  Company Number: JP-GENENTECH-251824

PATIENT
  Sex: Male
  Weight: 63 kg

DRUGS (6)
  1. RITUXAN [Suspect]
     Indication: NON-HODGKIN'S LYMPHOMA
     Dosage: 600 MG, QD
     Route: 042
     Dates: start: 20071009
  2. DEXAMETHASONE [Concomitant]
     Indication: BRAIN NEOPLASM
  3. PENTAZOCINE LACTATE [Concomitant]
     Indication: DRUG USE FOR UNKNOWN INDICATION
     Dosage: 15 MG, UNK
     Dates: start: 20071009
  4. HYDROXYZINE [Concomitant]
     Indication: DRUG USE FOR UNKNOWN INDICATION
  5. GLYCEOL [Concomitant]
     Indication: DRUG USE FOR UNKNOWN INDICATION
     Dosage: 30 ML, UNK
     Route: 042
     Dates: start: 20071009
  6. NICARDIPINE HYDROCHLORIDE [Concomitant]
     Indication: DRUG USE FOR UNKNOWN INDICATION
     Dates: start: 20071009

REACTIONS (6)
  - BLOOD PRESSURE INCREASED [None]
  - BRAIN OEDEMA [None]
  - DRUG INEFFECTIVE [None]
  - DYSPNOEA [None]
  - URINARY INCONTINENCE [None]
  - VOMITING [None]
